FAERS Safety Report 23019772 (Version 12)
Quarter: 2025Q2

REPORT INFORMATION
  Report Type: Report from Study
  Country: GT (occurrence: GT)
  Receive Date: 20231003
  Receipt Date: 20250523
  Transmission Date: 20250717
  Serious: Yes (Disabling, Other)
  Sender: ELI LILLY AND COMPANY
  Company Number: GT-ELI_LILLY_AND_COMPANY-GT202307001766

PATIENT
  Age: 60 Year
  Sex: Female

DRUGS (17)
  1. VERZENIO [Suspect]
     Active Substance: ABEMACICLIB
     Indication: Breast cancer
     Dosage: 150 MG, BID (EVERY 12 HOURS)
     Route: 048
     Dates: start: 20230526
  2. VERZENIO [Suspect]
     Active Substance: ABEMACICLIB
     Dosage: 150 MG, DAILY
     Route: 048
     Dates: start: 202401
  3. VERZENIO [Suspect]
     Active Substance: ABEMACICLIB
     Dosage: 100 MG, BID
     Route: 048
     Dates: start: 202402
  4. VERZENIO [Suspect]
     Active Substance: ABEMACICLIB
     Dosage: 150 MG, BID
     Route: 048
     Dates: start: 20240315
  5. VERZENIO [Suspect]
     Active Substance: ABEMACICLIB
     Dosage: 150 MG, DAILY
     Route: 048
  6. VERZENIO [Suspect]
     Active Substance: ABEMACICLIB
     Dosage: 150 MG, DAILY
     Route: 048
  7. VERZENIO [Suspect]
     Active Substance: ABEMACICLIB
     Dosage: 150 MG, DAILY
     Route: 048
  8. MORPHINE [Suspect]
     Active Substance: MORPHINE
     Indication: Bone pain
     Route: 065
  9. MORPHINE [Suspect]
     Active Substance: MORPHINE
     Indication: Arthralgia
     Route: 065
  10. MORPHINE [Suspect]
     Active Substance: MORPHINE
     Indication: Pain in extremity
  11. IRON [Suspect]
     Active Substance: IRON
     Indication: Haemoglobin decreased
     Route: 065
  12. IRON [Suspect]
     Active Substance: IRON
     Indication: Platelet count decreased
  13. IRON [Suspect]
     Active Substance: IRON
     Indication: Anaemia
  14. MODIFICAL [ONDANSETRON HYDROCHLORIDE] [Concomitant]
     Indication: Product used for unknown indication
  15. PROBIOTICS NOS [Concomitant]
     Active Substance: PROBIOTICS NOS
     Indication: Product used for unknown indication
     Route: 065
  16. LANZOPRAL [LANSOPRAZOLE] [Concomitant]
     Indication: Prophylaxis
     Route: 065
  17. OTILONIUM BROMIDE [Concomitant]
     Active Substance: OTILONIUM BROMIDE
     Indication: Product used for unknown indication
     Dosage: 40 MG, BID

REACTIONS (53)
  - Headache [Recovering/Resolving]
  - Insomnia [Recovering/Resolving]
  - Blood pressure decreased [Recovering/Resolving]
  - Dyspepsia [Recovering/Resolving]
  - Dizziness [Recovering/Resolving]
  - Oral discomfort [Recovering/Resolving]
  - Thirst [Recovering/Resolving]
  - Joint swelling [Recovering/Resolving]
  - Constipation [Recovering/Resolving]
  - Immunosuppression [Not Recovered/Not Resolved]
  - Gait disturbance [Not Recovered/Not Resolved]
  - Abdominal pain [Recovering/Resolving]
  - Abdominal pain [Recovering/Resolving]
  - Haemoglobin decreased [Not Recovered/Not Resolved]
  - Dry mouth [Recovering/Resolving]
  - Dysgeusia [Recovering/Resolving]
  - Anaemia [Not Recovered/Not Resolved]
  - Asthenia [Recovering/Resolving]
  - Fatigue [Recovering/Resolving]
  - Platelet count decreased [Not Recovered/Not Resolved]
  - Nausea [Recovering/Resolving]
  - Decreased appetite [Recovering/Resolving]
  - Diarrhoea [Recovering/Resolving]
  - Anaemia [Not Recovered/Not Resolved]
  - Malignant neoplasm progression [Not Recovered/Not Resolved]
  - Headache [Recovering/Resolving]
  - Musculoskeletal chest pain [Recovering/Resolving]
  - Nasal congestion [Not Recovered/Not Resolved]
  - Ear pain [Recovering/Resolving]
  - Arthralgia [Unknown]
  - Flank pain [Not Recovered/Not Resolved]
  - Pain in extremity [Not Recovered/Not Resolved]
  - Abdominal pain [Recovering/Resolving]
  - Headache [Unknown]
  - Bone pain [Not Recovered/Not Resolved]
  - Dehydration [Not Recovered/Not Resolved]
  - Influenza [Not Recovered/Not Resolved]
  - Pain in extremity [Recovering/Resolving]
  - Mobility decreased [Not Recovered/Not Resolved]
  - Peripheral swelling [Unknown]
  - Constipation [Unknown]
  - Proctalgia [Unknown]
  - Abdominal pain upper [Unknown]
  - Flatulence [Unknown]
  - Pyrexia [Not Recovered/Not Resolved]
  - Headache [Unknown]
  - Micturition urgency [Unknown]
  - Fatigue [Not Recovered/Not Resolved]
  - Nausea [Unknown]
  - Decreased appetite [Unknown]
  - Diarrhoea [Not Recovered/Not Resolved]
  - Asthenia [Unknown]
  - Fatigue [Not Recovered/Not Resolved]

NARRATIVE: CASE EVENT DATE: 20230601
